FAERS Safety Report 4629119-7 (Version None)
Quarter: 2005Q2

REPORT INFORMATION
  Report Type: 
  Country: None (occurrence: None)
  Receive Date: 20050404
  Receipt Date: 20050404
  Transmission Date: 20051028
  Serious: Yes (Hospitalization)
  Sender: FDA-Public Use
  Company Number: None

PATIENT
  Age: 73 Year
  Sex: Male
  Weight: 85.7298 kg

DRUGS (1)
  1. CAPECITABINE [Suspect]
     Indication: RECTAL CANCER
     Dosage: ORAL 160MG BID
     Route: 048
     Dates: start: 20050103, end: 20050207

REACTIONS (3)
  - ERYTHEMA [None]
  - PAIN [None]
  - SKIN WARM [None]
